FAERS Safety Report 5763080-7 (Version None)
Quarter: 2008Q2

REPORT INFORMATION
  Report Type: 
  Country: None (occurrence: None)
  Receive Date: 20080609
  Receipt Date: 20080528
  Transmission Date: 20081010
  Serious: Yes (Other)
  Sender: FDA-Public Use
  Company Number: SE-ELI_LILLY_AND_COMPANY-SE200805005912

PATIENT
  Sex: Female
  Weight: 68 kg

DRUGS (5)
  1. HUMATROPE [Suspect]
     Indication: GROWTH HORMONE DEFICIENCY
     Dosage: 0.1 MG, DAILY (1/D)
     Route: 065
     Dates: start: 20020403
  2. LEVOTHYROXINE SODIUM [Concomitant]
     Indication: SECONDARY HYPOTHYROIDISM
     Dosage: 100 UG, DAILY (1/D)
     Route: 065
     Dates: start: 20001026
  3. LEVOTHYROXINE SODIUM [Concomitant]
     Dosage: 50 UG, DAILY (1/D)
     Route: 065
     Dates: start: 20001026
  4. METOPROLOL TARTRATE [Concomitant]
     Indication: HYPERTENSION
     Dosage: 50 MG, DAILY (1/D)
     Route: 065
     Dates: start: 19900101
  5. HYDROCORTISONE [Concomitant]
     Indication: BLOOD CORTICOTROPHIN DECREASED
     Dosage: 15 MG, DAILY (1/D)
     Route: 065
     Dates: start: 20040831

REACTIONS (1)
  - DIABETES MELLITUS [None]
